FAERS Safety Report 7268393-8 (Version None)
Quarter: 2011Q1

REPORT INFORMATION
  Report Type: 
  Country: None (occurrence: None)
  Receive Date: 20110201
  Receipt Date: 20110119
  Transmission Date: 20110831
  Serious: Yes (Death, Hospitalization)
  Sender: FDA-Public Use
  Company Number: US-ACTELION-A-NJ2010-43040

PATIENT

DRUGS (2)
  1. TRACLEER [Suspect]
     Indication: PULMONARY ARTERIAL HYPERTENSION
     Dosage: UNK
     Route: 048
     Dates: start: 20090310, end: 20110101
  2. REVATIO [Concomitant]

REACTIONS (4)
  - FACIAL BONES FRACTURE [None]
  - FALL [None]
  - DEATH [None]
  - LOSS OF CONSCIOUSNESS [None]
